FAERS Safety Report 10669756 (Version 3)
Quarter: 2015Q1

REPORT INFORMATION
  Report Type: Spontaneous
  Country: US (occurrence: US)
  Receive Date: 20141222
  Receipt Date: 20150120
  Transmission Date: 20150720
  Serious: Yes (Hospitalization, Other)
  Sender: FDA-Public Use
  Company Number: US-GILEAD-2014-0128495

PATIENT
  Age: 74 Year
  Sex: Female

DRUGS (3)
  1. CIALIS [Concomitant]
     Active Substance: TADALAFIL
  2. COUMADIN [Concomitant]
     Active Substance: WARFARIN SODIUM
  3. LETAIRIS [Suspect]
     Active Substance: AMBRISENTAN
     Indication: PRODUCT USED FOR UNKNOWN INDICATION
     Dosage: 5 MG, QD
     Route: 065
     Dates: start: 20141216

REACTIONS (9)
  - Abdominal pain upper [Recovered/Resolved]
  - Throat irritation [Unknown]
  - Dyspepsia [Unknown]
  - Gastritis [Recovered/Resolved]
  - Diarrhoea [Unknown]
  - Hypertension [Recovered/Resolved]
  - Gastric disorder [Recovered/Resolved]
  - Atrial fibrillation [Unknown]
  - Oesophagitis [Recovered/Resolved]

NARRATIVE: CASE EVENT DATE: 201412
